FAERS Safety Report 25985814 (Version 2)
Quarter: 2025Q4

REPORT INFORMATION
  Report Type: Spontaneous
  Country: CA (occurrence: CA)
  Receive Date: 20251101
  Receipt Date: 20251107
  Transmission Date: 20260118
  Serious: Yes (Other)
  Sender: CELLTRION
  Company Number: CA-CELLTRION INC.-2025CA027160

PATIENT

DRUGS (1)
  1. INFLIXIMAB [Suspect]
     Active Substance: INFLIXIMAB
     Indication: Crohn^s disease
     Dosage: MAINTENANCE: 300 MG EVERY 8 WEEKS
     Route: 042
     Dates: start: 20250805

REACTIONS (6)
  - Harvey-Bradshaw index increased [Unknown]
  - Anxiety [Unknown]
  - Off label use [Unknown]
  - Product dose omission issue [Unknown]
  - Intentional dose omission [Unknown]
  - Inappropriate schedule of product administration [Unknown]

NARRATIVE: CASE EVENT DATE: 20250805
